FAERS Safety Report 8460530-2 (Version None)
Quarter: 2012Q2

REPORT INFORMATION
  Report Type: 
  Country: None (occurrence: None)
  Receive Date: 20120622
  Receipt Date: 20120613
  Transmission Date: 20120825
  Serious: Yes (Hospitalization)
  Sender: FDA-Public Use
  Company Number: GB-ASTRAZENECA-2012SE39718

PATIENT
  Age: 63 Year
  Sex: Male

DRUGS (5)
  1. PERINDOPRIL ERBUMINE [Concomitant]
  2. ATORVASTATIN CALCIUM [Concomitant]
  3. BRILINTA [Suspect]
     Indication: THROMBOSIS PROPHYLAXIS
     Route: 048
     Dates: start: 20120420, end: 20120525
  4. BISOPROLOL [Concomitant]
  5. ASPIRIN [Concomitant]

REACTIONS (2)
  - TRANSIENT ISCHAEMIC ATTACK [None]
  - ATRIAL FIBRILLATION [None]
